FAERS Safety Report 9282350 (Version 1)
Quarter: 2013Q2

REPORT INFORMATION
  Report Type: Spontaneous
  Country: MX (occurrence: MX)
  Receive Date: 20130510
  Receipt Date: 20130510
  Transmission Date: 20140414
  Serious: Yes (Other)
  Sender: FDA-Public Use
  Company Number: MX-PFIZER INC-2013145323

PATIENT
  Sex: Male

DRUGS (1)
  1. EPAMIN [Suspect]
     Dosage: 7 DF, 1X/DAY (2-2-3)
     Route: 048

REACTIONS (2)
  - Convulsion [Unknown]
  - Weight increased [Unknown]
